FAERS Safety Report 14273811 (Version 1)
Quarter: 2017Q4

REPORT INFORMATION
  Report Type: Report from Study
  Country: US (occurrence: US)
  Receive Date: 20171211
  Receipt Date: 20171211
  Transmission Date: 20180321
  Serious: Yes (Other)
  Sender: FDA-Public Use
  Company Number: US-B.I. PHARMACEUTICALS,INC./RIDGEFIELD-2017-BI-065055

PATIENT
  Age: 54 Year
  Sex: Male

DRUGS (1)
  1. GILOTRIF [Suspect]
     Active Substance: AFATINIB
     Indication: NON-SMALL CELL LUNG CANCER
     Route: 048
     Dates: start: 20140715, end: 20141217

REACTIONS (3)
  - Malignant neoplasm progression [Unknown]
  - Diarrhoea [Recovered/Resolved]
  - Ingrowing nail [Recovered/Resolved]

NARRATIVE: CASE EVENT DATE: 20140715
